FAERS Safety Report 11334762 (Version 2)
Quarter: 2015Q3

REPORT INFORMATION
  Report Type: Spontaneous
  Country: AU (occurrence: None)
  Receive Date: 20150731
  Receipt Date: 20150806
  Transmission Date: 20151125
  Serious: Yes (Hospitalization)
  Sender: FDA-Public Use
  Company Number: AU-2015VAL000495

PATIENT
  Age: 68 Year
  Sex: Male
  Weight: 98.3 kg

DRUGS (9)
  1. NEXIUM [Suspect]
     Active Substance: ESOMEPRAZOLE MAGNESIUM
     Indication: POST PROCEDURAL DISCOMFORT
     Route: 048
     Dates: start: 20140601
  2. ASPIRIN (ACETYLSALICYLIC ACID) [Concomitant]
     Active Substance: ASPIRIN
  3. SEREPAX (OXAZEPAM) [Concomitant]
  4. USTEKINUMAB [Suspect]
     Active Substance: USTEKINUMAB
  5. METOPROLOL TARTRATE (METOPROLOL TARTRATE) UNKNOWN [Suspect]
     Active Substance: METOPROLOL TARTRATE
     Indication: HYPERTENSION
     Route: 048
     Dates: start: 2009
  6. AIN457A [Suspect]
     Active Substance: SECUKINUMAB
     Indication: PSORIASIS
     Dosage: CODE NOT BROKEN, SUBCUTANEOUS
     Route: 058
     Dates: start: 20140602
  7. FELODIPINE (FELODIPINE) [Suspect]
     Active Substance: FELODIPINE
     Indication: HYPERTENSION
     Route: 048
     Dates: start: 2011
  8. ATACAND [Suspect]
     Active Substance: CANDESARTAN CILEXETIL
     Indication: HYPERTENSION
     Route: 048
     Dates: start: 2009
  9. NEXIUM [Suspect]
     Active Substance: ESOMEPRAZOLE MAGNESIUM
     Indication: GASTROOESOPHAGEAL REFLUX DISEASE
     Route: 048
     Dates: start: 20140601

REACTIONS (2)
  - Oral candidiasis [None]
  - Lichenification [None]

NARRATIVE: CASE EVENT DATE: 20140919
